FAERS Safety Report 14787669 (Version 1)
Quarter: 2018Q2

REPORT INFORMATION
  Report Type: Spontaneous
  Country: IT (occurrence: IT)
  Receive Date: 20180421
  Receipt Date: 20180421
  Transmission Date: 20180711
  Serious: Yes (Other)
  Sender: FDA-Public Use
  Company Number: IT-AUROBINDO-AUR-APL-2018-021387

PATIENT
  Age: 87 Year
  Sex: Male

DRUGS (1)
  1. OXYCODONE [Suspect]
     Active Substance: OXYCODONE
     Indication: DRUG ABUSE
     Dosage: 15 MILLIGRAM
     Route: 048
     Dates: start: 20170728, end: 20170728

REACTIONS (1)
  - Drug administration error [Recovering/Resolving]

NARRATIVE: CASE EVENT DATE: 20170728
